FAERS Safety Report 6246329-6 (Version None)
Quarter: 2009Q2

REPORT INFORMATION
  Report Type: 
  Country: None (occurrence: None)
  Receive Date: 20090624
  Receipt Date: 20090624
  Transmission Date: 20091009
  Serious: Yes (Hospitalization)
  Sender: FDA-Public Use
  Company Number: None

PATIENT

DRUGS (2)
  1. MIRTAZAPINE [Suspect]
     Indication: DEPRESSION
     Dosage: 1 TAB AT BEDTIME PO
     Route: 048
     Dates: start: 20031113
  2. AMITRIPTYLINE HCL [Suspect]
     Indication: NEURALGIA
     Dosage: 1 TAB AT BEDTIME PO
     Route: 048
     Dates: start: 20080826, end: 20090512

REACTIONS (3)
  - DIZZINESS [None]
  - FALL [None]
  - VERTIGO [None]
